FAERS Safety Report 17392006 (Version 1)
Quarter: 2020Q1

REPORT INFORMATION
  Report Type: Spontaneous
  Country: GB (occurrence: GB)
  Receive Date: 20200207
  Receipt Date: 20200207
  Transmission Date: 20200409
  Serious: Yes (Hospitalization, Other)
  Sender: FDA-Public Use
  Company Number: GB-ACCORD-171786

PATIENT
  Age: 51 Year
  Sex: Male
  Weight: 133.6 kg

DRUGS (7)
  1. CLONAZEPAM. [Concomitant]
     Active Substance: CLONAZEPAM
  2. PAROXETINE. [Concomitant]
     Active Substance: PAROXETINE
  3. AMISULPRIDE [Concomitant]
     Active Substance: AMISULPRIDE
  4. LACTULOSE. [Concomitant]
     Active Substance: LACTULOSE
  5. SENNA ALEXANDRINA [Concomitant]
     Active Substance: SENNA LEAF
  6. CLOZAPINE. [Suspect]
     Active Substance: CLOZAPINE
     Indication: SCHIZOPHRENIA
     Dosage: 200MG MIDDAY 250MG PM
     Route: 048
  7. BISOPROLOL [Concomitant]
     Active Substance: BISOPROLOL

REACTIONS (1)
  - Intestinal pseudo-obstruction [Not Recovered/Not Resolved]
